FAERS Safety Report 6490372-9 (Version None)
Quarter: 2009Q4

REPORT INFORMATION
  Report Type: 
  Country: None (occurrence: None)
  Receive Date: 20091211
  Receipt Date: 20091126
  Transmission Date: 20100525
  Serious: No
  Sender: FDA-Public Use
  Company Number: B0606317A

PATIENT

DRUGS (3)
  1. RELENZA [Suspect]
     Indication: INFLUENZA
     Dosage: 10MG TWICE PER DAY
     Dates: start: 20091115
  2. CHINESE MEDICINE [Concomitant]
     Indication: DRUG USE FOR UNKNOWN INDICATION
  3. CALONAL [Concomitant]
     Indication: DRUG USE FOR UNKNOWN INDICATION

REACTIONS (1)
  - DRUG EXPOSURE VIA BREAST MILK [None]
